FAERS Safety Report 6904382-8 (Version None)
Quarter: 2010Q3

REPORT INFORMATION
  Report Type: 
  Country: None (occurrence: None)
  Receive Date: 20100804
  Receipt Date: 20090506
  Transmission Date: 20110219
  Serious: No
  Sender: FDA-Public Use
  Company Number: US-PFIZER INC-2009189454

PATIENT
  Age: 80 Year
  Sex: Male

DRUGS (1)
  1. LYRICA [Suspect]
     Indication: NEUROPATHY PERIPHERAL
     Dosage: 50 MG, 1X/DAY
     Dates: start: 20090301

REACTIONS (1)
  - DYSPNOEA [None]
